FAERS Safety Report 7003529-5 (Version None)
Quarter: 2010Q3

REPORT INFORMATION
  Report Type: 
  Country: None (occurrence: None)
  Receive Date: 20100916
  Receipt Date: 20100906
  Transmission Date: 20110219
  Serious: Yes (Hospitalization)
  Sender: FDA-Public Use
  Company Number: JHP201000255

PATIENT

DRUGS (1)
  1. DANTRIUM [Suspect]
     Dosage: ORAL
     Route: 048

REACTIONS (1)
  - RESPIRATORY DISORDER [None]
